FAERS Safety Report 16794911 (Version 2)
Quarter: 2019Q3

REPORT INFORMATION
  Report Type: Spontaneous
  Country: US (occurrence: US)
  Receive Date: 20190911
  Receipt Date: 20190923
  Transmission Date: 20191005
  Serious: No
  Sender: FDA-Public Use
  Company Number: US-PFIZER INC-2019389497

PATIENT
  Age: 75 Year
  Sex: Female
  Weight: 90.7 kg

DRUGS (8)
  1. OMEPRAZOLE. [Concomitant]
     Active Substance: OMEPRAZOLE
     Indication: GASTROINTESTINAL DISORDER
  2. MORPHINE [Concomitant]
     Active Substance: MORPHINE
     Dosage: 30 MG, TWICE A DAY (ONCE IN MORNING AND ONCE IN EVENING)
     Dates: start: 1997
  3. ENBREL [Suspect]
     Active Substance: ETANERCEPT
     Indication: PSORIATIC ARTHROPATHY
     Dosage: 50 MG, TWICE A WEEK (ONCE ON MONDAY IN LEFT STOMACH AND ONCE ON THURSDAY IN RIGHT STOMACH)
  4. HYDROXYUREA. [Suspect]
     Active Substance: HYDROXYUREA
     Indication: BLOOD COUNT ABNORMAL
     Dosage: 1000 MG, ONCE A DAY (2 CAPSULES IN THE MORNING)
     Route: 048
  5. ENBREL [Suspect]
     Active Substance: ETANERCEPT
     Indication: PSORIASIS
  6. OMEPRAZOLE. [Concomitant]
     Active Substance: OMEPRAZOLE
     Indication: GASTROOESOPHAGEAL REFLUX DISEASE
  7. CELEBREX [Suspect]
     Active Substance: CELECOXIB
     Indication: ARTHRITIS
     Dosage: 200 MG,TWICE A DAY (ONCE IN MORNING AND ONCE AT NIGHT)
     Route: 048
  8. OMEPRAZOLE. [Concomitant]
     Active Substance: OMEPRAZOLE
     Indication: HIATUS HERNIA
     Dosage: UNK

REACTIONS (2)
  - Tremor [Not Recovered/Not Resolved]
  - Blood urine present [Unknown]
